FAERS Safety Report 6156440-6 (Version None)
Quarter: 2009Q2

REPORT INFORMATION
  Report Type: 
  Country: None (occurrence: None)
  Receive Date: 20090416
  Receipt Date: 20090408
  Transmission Date: 20091009
  Serious: Yes (Death, Hospitalization)
  Sender: FDA-Public Use
  Company Number: US-JNJFOC-20090402199

PATIENT
  Age: 57 Year
  Sex: Female

DRUGS (7)
  1. ACETAMINOPHEN [Suspect]
  2. ACETAMINOPHEN [Suspect]
     Indication: HEADACHE
     Dosage: 1000-2000 MG PER WEEK ON AVERAGE
  3. EXTRA STRENGTH TYLENOL [Interacting]
     Indication: INSOMNIA
  4. SUNITINIB [Interacting]
     Indication: GASTROINTESTINAL STROMAL TUMOUR
     Dosage: REPEATING 6 WK CYCLES OF 4 WK ON 50 MG/DAY FOLLOWED BY 2 WKS OFF TREATMENT
  5. LEVOTHYROXINE SODIUM [Interacting]
     Dosage: ON DAY 28 OF CYCLE 8
  6. LEVOTHYROXINE SODIUM [Interacting]
     Dosage: AFTER 1 WEEK OF STARTING THE 50 UG
  7. LEVOTHYROXINE SODIUM [Interacting]
     Indication: THYROID FUNCTION TEST ABNORMAL
     Dosage: DAY 12 OF CYCLE 8

REACTIONS (3)
  - DRUG INTERACTION [None]
  - HEPATIC FAILURE [None]
  - RENAL FAILURE [None]
